FAERS Safety Report 17334427 (Version 1)
Quarter: 2020Q1

REPORT INFORMATION
  Report Type: Spontaneous
  Country: US (occurrence: US)
  Receive Date: 20200128
  Receipt Date: 20200128
  Transmission Date: 20200409
  Serious: Yes (Hospitalization, Other)
  Sender: FDA-Public Use
  Company Number: US-ADVANZ PHARMA-202001000256

PATIENT

DRUGS (20)
  1. ESMOLOL HYDROCHLORIDE. [Concomitant]
     Active Substance: ESMOLOL HYDROCHLORIDE
     Dosage: 30-150 UG/KG/MIN
     Route: 042
  2. METYROSINE [Concomitant]
     Active Substance: METYROSINE
     Dosage: 500 MG, QID
  3. PHENOXYBENZAMINE [Suspect]
     Active Substance: PHENOXYBENZAMINE
     Dosage: 40 MG, TID
  4. PROPOFOL. [Concomitant]
     Active Substance: PROPOFOL
     Indication: SEDATION
     Dosage: 83 UG/KG/MIN
     Route: 042
  5. FENTANYL. [Concomitant]
     Active Substance: FENTANYL
     Indication: ANALGESIC THERAPY
     Dosage: PRN (25-100 UG EVERY TWO HOURS AS NEEDED), (750 MG/24 HR)
     Route: 042
  6. SODIUM CHLORIDE. [Concomitant]
     Active Substance: SODIUM CHLORIDE
     Dosage: 0.9 %
  7. PHENOXYBENZAMINE [Suspect]
     Active Substance: PHENOXYBENZAMINE
     Indication: PROPHYLAXIS
     Dosage: 10 MG, BID
     Route: 048
  8. ESMOLOL HYDROCHLORIDE. [Concomitant]
     Active Substance: ESMOLOL HYDROCHLORIDE
     Dosage: 60-133 UG/KG/MIN
  9. PHENTOLAMINE MESYLATE. [Concomitant]
     Active Substance: PHENTOLAMINE MESYLATE
     Dosage: 19-52 MG/HR BY CONTINUOUS INFUSION
  10. MIDAZOLAM HYDROCHLORIDE. [Concomitant]
     Active Substance: MIDAZOLAM HYDROCHLORIDE
     Dosage: 7.5 MG/HR
     Route: 042
  11. PHENOXYBENZAMINE [Suspect]
     Active Substance: PHENOXYBENZAMINE
     Dosage: 10 MG, BID
  12. METOPROLOL TARTRATE. [Concomitant]
     Active Substance: METOPROLOL TARTRATE
     Dosage: 100 MG, BID
     Route: 048
  13. PHENTOLAMINE MESYLATE. [Concomitant]
     Active Substance: PHENTOLAMINE MESYLATE
     Dosage: 1 MG/HR
     Route: 042
  14. FENTANYL. [Concomitant]
     Active Substance: FENTANYL
     Dosage: (750 MG/24 HR)
     Route: 042
  15. LORAZEPAM. [Concomitant]
     Active Substance: LORAZEPAM
     Indication: SEDATION
     Dosage: UP TO A MAXIMUM DOSAGE OF 4 MG/HR
     Route: 040
  16. NITROGLYCERIN. [Concomitant]
     Active Substance: NITROGLYCERIN
     Dosage: 80-200 UG/MIN
  17. PHENTOLAMINE MESYLATE. [Concomitant]
     Active Substance: PHENTOLAMINE MESYLATE
     Dosage: 5 MG
     Route: 040
  18. METYROSINE [Concomitant]
     Active Substance: METYROSINE
     Dosage: 250 MG, QID, EVERY 6 HOURS
  19. PHENTOLAMINE MESYLATE. [Concomitant]
     Active Substance: PHENTOLAMINE MESYLATE
     Dosage: 12-36  MG/HR)
     Route: 042
  20. MIDAZOLAM HYDROCHLORIDE. [Concomitant]
     Active Substance: MIDAZOLAM HYDROCHLORIDE
     Indication: SEDATION
     Dosage: UP TO 10 MG/HR
     Route: 042

REACTIONS (4)
  - Incorrect dose administered [Unknown]
  - Blood pressure increased [Unknown]
  - Cardiac arrest [Unknown]
  - Therapeutic response decreased [Unknown]
